FAERS Safety Report 9262169 (Version 3)
Quarter: 2013Q3

REPORT INFORMATION
  Report Type: Spontaneous
  Country: US (occurrence: US)
  Receive Date: 20130430
  Receipt Date: 20130805
  Transmission Date: 20140515
  Serious: Yes (Hospitalization)
  Sender: FDA-Public Use
  Company Number: US-BIOGENIDEC-2013BI037844

PATIENT
  Age: 57 Year
  Sex: Female

DRUGS (1)
  1. TYSABRI [Suspect]
     Indication: MULTIPLE SCLEROSIS
     Route: 042
     Dates: start: 20121221

REACTIONS (6)
  - Fall [Recovered/Resolved]
  - Wrist fracture [Recovered/Resolved]
  - Hand fracture [Recovered/Resolved]
  - Arterial injury [Recovered/Resolved]
  - Nerve injury [Recovered/Resolved]
  - Fatigue [Recovered/Resolved]
